FAERS Safety Report 16005079 (Version 1)
Quarter: 2019Q1

REPORT INFORMATION
  Report Type: Spontaneous
  Country: US (occurrence: US)
  Receive Date: 20190226
  Receipt Date: 20190226
  Transmission Date: 20190418
  Serious: No
  Sender: FDA-Public Use
  Company Number: US-TEVA-2019-US-1013638

PATIENT
  Sex: Male

DRUGS (1)
  1. METHYLPHENIDATE ER [Suspect]
     Active Substance: METHYLPHENIDATE
     Route: 065

REACTIONS (4)
  - Personality change [Unknown]
  - Irritability [Unknown]
  - Somnolence [Unknown]
  - Product substitution issue [Unknown]
